FAERS Safety Report 16188491 (Version 1)
Quarter: 2019Q2

REPORT INFORMATION
  Report Type: Spontaneous
  Country: US (occurrence: US)
  Receive Date: 20190412
  Receipt Date: 20190412
  Transmission Date: 20190711
  Serious: Yes (Other)
  Sender: FDA-Public Use
  Company Number: US-LUPIN PHARMACEUTICALS INC.-2019-02131

PATIENT
  Age: 34 Year
  Sex: Female

DRUGS (4)
  1. TRIAMCINOLONE ACETONIDE. [Suspect]
     Active Substance: TRIAMCINOLONE ACETONIDE
     Indication: CHORIORETINITIS
     Dosage: 4 MILLIGRAM, FIRST INJECTION
  2. TRIAMCINOLONE ACETONIDE. [Suspect]
     Active Substance: TRIAMCINOLONE ACETONIDE
     Dosage: 4 MILLIGRAM, SECOND INJECTION
  3. TRIAMCINOLONE ACETONIDE. [Suspect]
     Active Substance: TRIAMCINOLONE ACETONIDE
     Dosage: 4 MILLIGRAM, SIXTH INJECTION
  4. TRIAMCINOLONE ACETONIDE. [Suspect]
     Active Substance: TRIAMCINOLONE ACETONIDE
     Dosage: 4 MILLIGRAM, EVERY 6 MONTHS

REACTIONS (4)
  - Cataract subcapsular [Recovered/Resolved]
  - Intraocular pressure increased [Recovered/Resolved]
  - Exposure during pregnancy [Unknown]
  - Non-infectious endophthalmitis [Recovered/Resolved]
